FAERS Safety Report 5086308-8 (Version None)
Quarter: 2006Q3

REPORT INFORMATION
  Report Type: 
  Country: None (occurrence: None)
  Receive Date: 20060823
  Receipt Date: 20060818
  Transmission Date: 20061208
  Serious: Yes (Life-Threatening)
  Sender: FDA-Public Use
  Company Number: PHBS2006CH12411

PATIENT
  Sex: Female

DRUGS (4)
  1. FENTANYL [Concomitant]
     Route: 042
  2. BUPIVACAINE [Concomitant]
     Route: 042
  3. ROCEPHIN [Concomitant]
     Dosage: 2 G, UNK
     Route: 042
  4. SYNTOCINON [Suspect]
     Dosage: 5 IU, UNK
     Route: 042

REACTIONS (4)
  - ANAPHYLACTIC REACTION [None]
  - ANGIONEUROTIC OEDEMA [None]
  - RESPIRATORY DISTRESS [None]
  - TYPE III IMMUNE COMPLEX MEDIATED REACTION [None]
